FAERS Safety Report 16325933 (Version 1)
Quarter: 2019Q2

REPORT INFORMATION
  Report Type: Spontaneous
  Country: US (occurrence: US)
  Receive Date: 20190517
  Receipt Date: 20190517
  Transmission Date: 20190711
  Serious: No
  Sender: FDA-Public Use
  Company Number: US-GLAXOSMITHKLINE-US2019083822

PATIENT
  Age: 36 Year
  Sex: Male

DRUGS (1)
  1. FLONASE [Suspect]
     Active Substance: FLUTICASONE PROPIONATE
     Indication: HYPERSENSITIVITY
     Dosage: 2 UNK, UNK
     Route: 045

REACTIONS (8)
  - Epistaxis [Not Recovered/Not Resolved]
  - Hyposmia [Not Recovered/Not Resolved]
  - Pain [Not Recovered/Not Resolved]
  - Nasal pruritus [Not Recovered/Not Resolved]
  - Nasal dryness [Not Recovered/Not Resolved]
  - Feeling hot [Not Recovered/Not Resolved]
  - Ocular hyperaemia [Not Recovered/Not Resolved]
  - Adverse drug reaction [Unknown]
